FAERS Safety Report 11261303 (Version 2)
Quarter: 2015Q3

REPORT INFORMATION
  Report Type: Report from Study
  Country: US (occurrence: US)
  Receive Date: 20150710
  Receipt Date: 20150715
  Transmission Date: 20151125
  Serious: Yes (Death, Hospitalization, Other)
  Sender: FDA-Public Use
  Company Number: US-BAYER-2015-277860

PATIENT
  Age: 57 Year
  Sex: Female

DRUGS (7)
  1. OMEPRAZOLE. [Concomitant]
     Active Substance: OMEPRAZOLE
  2. KLOR-CON M20 [Concomitant]
     Active Substance: POTASSIUM CHLORIDE
  3. STIVARGA [Suspect]
     Active Substance: REGORAFENIB
     Indication: COLORECTAL CANCER METASTATIC
     Dosage: 80 MG DAILY DOSE
     Route: 048
     Dates: start: 201505, end: 201506
  4. VENTOLIN [Concomitant]
     Active Substance: ALBUTEROL SULFATE
  5. CEFDINIR. [Concomitant]
     Active Substance: CEFDINIR
  6. CLOBETASOL PROPIONATE. [Concomitant]
     Active Substance: CLOBETASOL PROPIONATE
  7. STIVARGA [Suspect]
     Active Substance: REGORAFENIB
     Indication: COLORECTAL CANCER METASTATIC
     Dosage: 160 MG DAILY DOSE
     Route: 048
     Dates: start: 20150515, end: 20150518

REACTIONS (17)
  - Colorectal cancer metastatic [Fatal]
  - Anaemia [None]
  - Vomiting [None]
  - Dehydration [None]
  - Pyrexia [None]
  - Fatigue [Not Recovered/Not Resolved]
  - Decreased appetite [None]
  - Weight decreased [None]
  - Vomiting [None]
  - Diarrhoea [None]
  - Nausea [None]
  - Tachycardia [None]
  - Hospitalisation [None]
  - Upper respiratory tract infection [None]
  - Malaise [None]
  - Chills [None]
  - Back pain [Recovering/Resolving]

NARRATIVE: CASE EVENT DATE: 2015
